FAERS Safety Report 8596849-4 (Version None)
Quarter: 2012Q3

REPORT INFORMATION
  Report Type: 
  Country: None (occurrence: None)
  Receive Date: 20120815
  Receipt Date: 20120810
  Transmission Date: 20120928
  Serious: Yes (Death)
  Sender: FDA-Public Use
  Company Number: US-PFIZER INC-2012194797

PATIENT
  Age: 90 Year
  Sex: Female
  Weight: 48.299 kg

DRUGS (12)
  1. SYNTHROID [Concomitant]
     Indication: HYPOTHYROIDISM
     Dosage: 0.05 MG, DAILY
     Route: 048
     Dates: start: 20020101
  2. MULTI-VITAMINS [Concomitant]
     Indication: MEDICAL DIET
     Dosage: 1 TAB, DAILY
     Route: 048
     Dates: start: 19600101
  3. CARTIA XT [Concomitant]
     Indication: HYPERTENSION
     Dosage: 120 MG, DAILY
     Route: 048
     Dates: start: 20111101
  4. LOSARTAN [Concomitant]
     Indication: HYPERTENSION
     Dosage: 1 TAB, DAILY
     Route: 048
     Dates: start: 20120110
  5. VITAMIN D [Concomitant]
     Indication: MEDICAL DIET
     Dosage: 2000 MG, DIALY
     Route: 048
     Dates: start: 20070101
  6. NIACIN [Concomitant]
     Indication: HYPERCHOLESTEROLAEMIA
     Dosage: 1 TAB, DAILY
     Route: 048
     Dates: start: 20100302
  7. CELECOXIB [Suspect]
     Indication: OSTEOARTHRITIS
     Dosage: 100 MG, 2X/DAY
     Route: 048
     Dates: start: 20090730
  8. ACETYLSALICYLIC ACID [Concomitant]
     Indication: CARDIOVASCULAR EVENT PROPHYLAXIS
     Dosage: 81 MG, DAILY
     Route: 048
     Dates: start: 20000101
  9. NORITATE [Concomitant]
     Indication: ROSACEA
     Dosage: 1 APP, QHS
     Route: 061
     Dates: start: 19880101
  10. ZOLEDRONIC ACID [Concomitant]
     Indication: OSTEOPOROSIS
     Dosage: 1 DOSE YEARLY
     Route: 042
     Dates: start: 20070101
  11. CALCIUM [Concomitant]
     Indication: OSTEOPOROSIS
     Dosage: 1200 MG, DAILY
     Route: 048
     Dates: start: 19400101
  12. BENADRYL [Concomitant]
     Indication: RHINITIS SEASONAL
     Dosage: 1 TAB, PM
     Route: 048
     Dates: start: 19990101

REACTIONS (1)
  - DEATH [None]
